FAERS Safety Report 8612147-4 (Version None)
Quarter: 2012Q3

REPORT INFORMATION
  Report Type: 
  Country: None (occurrence: None)
  Receive Date: 20120822
  Receipt Date: 20120813
  Transmission Date: 20120928
  Serious: Yes (Other)
  Sender: FDA-Public Use
  Company Number: US-BAYER-2012-079265

PATIENT
  Age: 36 Year
  Sex: Female

DRUGS (2)
  1. DROSPIRENONE AND ETHINYL ESTRADIOL [Suspect]
     Dosage: UNK
     Dates: start: 20080804, end: 20101025
  2. YASMIN [Suspect]
     Dosage: UNK
     Dates: start: 20070324, end: 20080627

REACTIONS (3)
  - THROMBOPHLEBITIS SUPERFICIAL [None]
  - PAIN [None]
  - INJURY [None]
